FAERS Safety Report 14747453 (Version 2)
Quarter: 2018Q2

REPORT INFORMATION
  Report Type: Spontaneous
  Country: CZ (occurrence: CZ)
  Receive Date: 20180411
  Receipt Date: 20180430
  Transmission Date: 20180711
  Serious: Yes (Death, Hospitalization, Other)
  Sender: FDA-Public Use
  Company Number: CZ-B.I. PHARMACEUTICALS,INC./RIDGEFIELD-2018-BI-019762

PATIENT
  Age: 77 Year
  Sex: Female

DRUGS (6)
  1. BETAXA [Concomitant]
     Indication: PRODUCT USED FOR UNKNOWN INDICATION
     Route: 048
  2. SORTIS [Concomitant]
     Active Substance: ATORVASTATIN
     Indication: PRODUCT USED FOR UNKNOWN INDICATION
     Route: 048
  3. PRADAXA [Suspect]
     Active Substance: DABIGATRAN ETEXILATE MESYLATE
     Indication: ATRIAL FIBRILLATION
  4. PRADAXA [Suspect]
     Active Substance: DABIGATRAN ETEXILATE MESYLATE
     Indication: CEREBROVASCULAR ACCIDENT PROPHYLAXIS
     Route: 065
     Dates: end: 201803
  5. TRIPLIXAM [Concomitant]
     Active Substance: AMLODIPINE BESYLATE\INDAPAMIDE\PERINDOPRIL ARGININE
     Indication: PRODUCT USED FOR UNKNOWN INDICATION
     Dosage: STRENGTH: 10MG/2.5MG/5MG
     Route: 048
  6. NITROGLYCERIN. [Concomitant]
     Active Substance: NITROGLYCERIN
     Indication: PAIN
     Route: 065

REACTIONS (2)
  - Basilar artery occlusion [Fatal]
  - Ischaemic stroke [Fatal]

NARRATIVE: CASE EVENT DATE: 20180330
